FAERS Safety Report 5514669-1 (Version None)
Quarter: 2007Q4

REPORT INFORMATION
  Report Type: 
  Country: None (occurrence: None)
  Receive Date: 20071113
  Receipt Date: 20071101
  Transmission Date: 20080405
  Serious: Yes (Other)
  Sender: FDA-Public Use
  Company Number: US-PFIZER INC-2007080700

PATIENT
  Sex: Male
  Weight: 77.1 kg

DRUGS (5)
  1. CHANTIX [Suspect]
     Indication: SMOKING CESSATION THERAPY
     Dates: start: 20070601, end: 20070801
  2. SYNTHROID [Concomitant]
  3. LIPITOR [Concomitant]
  4. PREVACID [Concomitant]
  5. LOTREL [Concomitant]

REACTIONS (8)
  - DEPRESSION [None]
  - DYSPHORIA [None]
  - HOSTILITY [None]
  - INSOMNIA [None]
  - NAUSEA [None]
  - NIGHTMARE [None]
  - PAROSMIA [None]
  - VIOLENCE-RELATED SYMPTOM [None]
